FAERS Safety Report 5354407-9 (Version None)
Quarter: 2007Q2

REPORT INFORMATION
  Report Type: 
  Country: None (occurrence: None)
  Receive Date: 20070612
  Receipt Date: 20070604
  Transmission Date: 20071010
  Serious: Yes (Other)
  Sender: FDA-Public Use
  Company Number: PHBS2006JP02188

PATIENT
  Age: 69 Year
  Sex: Female
  Weight: 40 kg

DRUGS (5)
  1. AREDIA [Suspect]
     Indication: METASTASES TO BONE
     Dosage: 90 MG, QMO
     Dates: start: 20031010, end: 20050415
  2. PACLITAXEL [Concomitant]
     Dosage: 80 MG/M2
     Route: 042
     Dates: start: 20031002, end: 20040212
  3. TRASTUZUMAB [Concomitant]
     Dosage: 2 MG/KG
     Route: 042
     Dates: start: 20031106, end: 20040212
  4. ANASTROZOLE [Concomitant]
     Dosage: 1 MG/D
     Route: 048
     Dates: start: 20030305
  5. DESMOPRESSIN [Concomitant]
     Dosage: 10 MG/D
     Dates: start: 20030916

REACTIONS (6)
  - OSTEOMYELITIS [None]
  - OSTEONECROSIS [None]
  - PERIODONTITIS [None]
  - SEQUESTRECTOMY [None]
  - TOOTH REPAIR [None]
  - TOOTHACHE [None]
